FAERS Safety Report 9373045 (Version 1)
Quarter: 2013Q2

REPORT INFORMATION
  Report Type: Spontaneous
  Country: US (occurrence: US)
  Receive Date: 20130627
  Receipt Date: 20130627
  Transmission Date: 20140414
  Serious: Yes (Other)
  Sender: FDA-Public Use
  Company Number: US-PFIZER INC-2013188855

PATIENT
  Sex: Female

DRUGS (2)
  1. AMLODIPINE BESILATE [Suspect]
     Dosage: 5 MG, UNK
     Route: 065
  2. CARVEDILOL [Suspect]
     Dosage: 6.25 MG, UNK
     Route: 065

REACTIONS (5)
  - Diabetes mellitus [Unknown]
  - Urinary incontinence [Unknown]
  - Urine output increased [Unknown]
  - Blood pressure increased [Unknown]
  - Product dosage form issue [Unknown]
